FAERS Safety Report 6212342-8 (Version None)
Quarter: 2009Q2

REPORT INFORMATION
  Report Type: 
  Country: None (occurrence: None)
  Receive Date: 20090529
  Receipt Date: 20090515
  Transmission Date: 20091009
  Serious: Yes (Life-Threatening)
  Sender: FDA-Public Use
  Company Number: 275255

PATIENT
  Age: 54 Year
  Sex: Female

DRUGS (5)
  1. PACLITAXEL [Suspect]
     Indication: ADENOCARCINOMA
     Dosage: 175 MG/M2, INTRAVENOUS
     Route: 042
     Dates: start: 20090421, end: 20090512
  2. PACLITAXEL [Suspect]
     Indication: OVARIAN CANCER
     Dosage: 175 MG/M2, INTRAVENOUS
     Route: 042
     Dates: start: 20090421, end: 20090512
  3. (DEXAMETHASONE) [Concomitant]
  4. (TRIMETON /00072502/) [Concomitant]
  5. (RANIDIL) [Concomitant]

REACTIONS (5)
  - BRADYCARDIA [None]
  - CARDIOVASCULAR DISORDER [None]
  - HYPERSENSITIVITY [None]
  - OXYGEN SATURATION DECREASED [None]
  - SHOCK [None]
